FAERS Safety Report 16656005 (Version 1)
Quarter: 2019Q3

REPORT INFORMATION
  Report Type: Report from Study
  Country: US (occurrence: US)
  Receive Date: 20190801
  Receipt Date: 20190801
  Transmission Date: 20191004
  Serious: Yes (Other)
  Sender: FDA-Public Use
  Company Number: US-EMD SERONO-9107218

PATIENT
  Sex: Female

DRUGS (1)
  1. REBIF [Suspect]
     Active Substance: INTERFERON BETA-1A
     Indication: PRODUCT USED FOR UNKNOWN INDICATION
     Dosage: THREE INJECTIONS IN ONE WEEK AND TWO INJECTIONS THE NEXT WEEK
     Route: 058
     Dates: start: 20050127

REACTIONS (3)
  - Eye disorder [Unknown]
  - Off label use [Unknown]
  - Localised infection [Unknown]
